FAERS Safety Report 17861095 (Version 1)
Quarter: 2020Q2

REPORT INFORMATION
  Report Type: Spontaneous
  Country: BE (occurrence: BE)
  Receive Date: 20200604
  Receipt Date: 20200604
  Transmission Date: 20200714
  Serious: Yes (Death)
  Sender: FDA-Public Use
  Company Number: BE-CUMBERLAND-2020-BE-000001

PATIENT
  Age: 45 Year
  Sex: Male

DRUGS (1)
  1. ACETADOTE [Suspect]
     Active Substance: ACETYLCYSTEINE

REACTIONS (2)
  - Drug ineffective [Fatal]
  - Intracranial pressure increased [Fatal]
